FAERS Safety Report 8031340-5 (Version None)
Quarter: 2012Q1

REPORT INFORMATION
  Report Type: 
  Country: None (occurrence: None)
  Receive Date: 20120109
  Receipt Date: 20111229
  Transmission Date: 20120608
  Serious: Yes (Hospitalization)
  Sender: FDA-Public Use
  Company Number: US-GLAXOSMITHKLINE-B0773998A

PATIENT
  Age: 59 Year
  Sex: Male

DRUGS (5)
  1. SILDENAFIL [Suspect]
     Indication: PRODUCT USED FOR UNKNOWN INDICATION
     Dosage: 6TAB CUMULATIVE DOSE
     Route: 065
  2. ENALAPRIL MALEATE [Suspect]
     Indication: PRODUCT USED FOR UNKNOWN INDICATION
     Route: 065
  3. PROPAFENONE HCL [Suspect]
     Indication: PRODUCT USED FOR UNKNOWN INDICATION
     Route: 065
  4. DABIGATRAN [Suspect]
     Indication: PRODUCT USED FOR UNKNOWN INDICATION
     Dosage: 30TAB CUMULATIVE DOSE
     Route: 065
  5. PRAVASTATIN SODIUM [Concomitant]

REACTIONS (6)
  - TOXICITY TO VARIOUS AGENTS [None]
  - RESPIRATORY DISTRESS [None]
  - WEANING FAILURE [None]
  - MENTAL STATUS CHANGES [None]
  - PNEUMONIA [None]
  - ELECTROCARDIOGRAM QRS COMPLEX PROLONGED [None]
